FAERS Safety Report 9473907 (Version 1)
Quarter: 2013Q3

REPORT INFORMATION
  Report Type: Spontaneous
  Country: US (occurrence: US)
  Receive Date: 20130823
  Receipt Date: 20130823
  Transmission Date: 20140515
  Serious: No
  Sender: FDA-Public Use
  Company Number: US-BRISTOL-MYERS SQUIBB COMPANY-17129867

PATIENT
  Age: 77 Year
  Sex: Male
  Weight: 113.38 kg

DRUGS (12)
  1. SPRYCEL (CML) TABS 100 MG [Suspect]
     Dates: start: 20121030
  2. CLOPIDOGREL BISULFATE [Concomitant]
  3. DILTIAZEMUM [Concomitant]
  4. FINASTERIDE [Concomitant]
  5. FUROSEMIDE [Concomitant]
  6. KLOR-CON [Concomitant]
  7. LISINOPRIL [Concomitant]
  8. LOSARTAN [Concomitant]
  9. OMEPRAZOLE [Concomitant]
  10. SIMVASTATIN [Concomitant]
  11. VITAMIN D [Concomitant]
  12. WARFARIN [Concomitant]

REACTIONS (1)
  - Abdominal pain [Recovered/Resolved]
